FAERS Safety Report 4748074-2 (Version None)
Quarter: 2005Q3

REPORT INFORMATION
  Report Type: 
  Country: None (occurrence: None)
  Receive Date: 20050818
  Receipt Date: 20050813
  Transmission Date: 20060218
  Serious: Yes (Hospitalization)
  Sender: FDA-Public Use
  Company Number: A01200505085

PATIENT
  Age: 83 Year
  Sex: Female

DRUGS (2)
  1. AMOXICILLIN AND CLAVULANATE POTASSIUM [Suspect]
     Dosage: 1.2G PER DAY
  2. BUPIVACAINE [Concomitant]
     Dosage: 2.5ML PER DAY

REACTIONS (3)
  - ANAPHYLACTIC SHOCK [None]
  - ELECTROMECHANICAL DISSOCIATION [None]
  - PULSE ABSENT [None]
